FAERS Safety Report 7756578-3 (Version None)
Quarter: 2011Q3

REPORT INFORMATION
  Report Type: 
  Country: None (occurrence: None)
  Receive Date: 20110916
  Receipt Date: 20110909
  Transmission Date: 20111222
  Serious: Yes (Other)
  Sender: FDA-Public Use
  Company Number: PHFR2011GB05026

PATIENT
  Sex: Female

DRUGS (14)
  1. LOSARTAN POTASSIUM [Concomitant]
     Dosage: 50 MG, QD
     Route: 048
  2. MEPTAZINOL [Concomitant]
     Dosage: 200 MG, UNK
     Route: 048
  3. FLOXAPEN [Concomitant]
     Dosage: 500 MG, QID
     Route: 048
  4. FERROUS SULFATE TAB [Concomitant]
     Dosage: 200 MG, TID
     Route: 048
  5. LEVOTHYROXINE SODIUM [Concomitant]
     Dosage: 200 MG, UNK
     Route: 048
  6. ORLISTAT [Concomitant]
     Dosage: 120 MG, TID
     Route: 048
  7. CLOBETASOL PROPIONATE [Concomitant]
     Dosage: UNK UKN, UNK
     Route: 061
  8. VOLTAREN-XR [Suspect]
     Indication: GOUT
     Dosage: 75 MG, BID
     Route: 048
     Dates: start: 20100316
  9. GLICLAZIDE [Concomitant]
     Dosage: 160 MG, BID
     Route: 048
  10. ALLOPURINOL [Concomitant]
     Dosage: 300 MG, QD
  11. PRILOSEC [Concomitant]
     Dosage: 40 MG, UNK
     Route: 048
  12. METFORMIN HCL [Concomitant]
     Dosage: 850 MG, TID
     Route: 048
  13. ASPIRIN [Concomitant]
     Dosage: 75 MG, QD
  14. FUROSEMIDE [Concomitant]
     Dosage: UNK UKN, UNK

REACTIONS (2)
  - WHEEZING [None]
  - ABDOMINAL PAIN UPPER [None]
